FAERS Safety Report 6368288-8 (Version None)
Quarter: 2009Q3

REPORT INFORMATION
  Report Type: 
  Country: None (occurrence: None)
  Receive Date: 20090922
  Receipt Date: 20090915
  Transmission Date: 20100115
  Serious: Yes (Other)
  Sender: FDA-Public Use
  Company Number: US-MYLANLABS-2009S1014723

PATIENT
  Sex: Male

DRUGS (1)
  1. PHENYTOIN SODIUM [Suspect]
     Indication: CONVULSION PROPHYLAXIS
     Route: 048
     Dates: start: 20090626, end: 20080821

REACTIONS (13)
  - ABNORMAL BEHAVIOUR [None]
  - ALOPECIA [None]
  - COMA [None]
  - CONFUSIONAL STATE [None]
  - DIZZINESS [None]
  - GENERAL PHYSICAL HEALTH DETERIORATION [None]
  - HALLUCINATION [None]
  - HEADACHE [None]
  - INCOHERENT [None]
  - INCORRECT DOSE ADMINISTERED [None]
  - PAIN [None]
  - SOMNAMBULISM [None]
  - SOMNOLENCE [None]
